FAERS Safety Report 21837333 (Version 1)
Quarter: 2023Q1

REPORT INFORMATION
  Report Type: Spontaneous
  Country: US (occurrence: US)
  Receive Date: 20230109
  Receipt Date: 20230109
  Transmission Date: 20230417
  Serious: No
  Sender: FDA-Public Use
  Company Number: US-BRISTOL-MYERS SQUIBB COMPANY-2023-003164

PATIENT
  Age: 69 Year
  Sex: Female

DRUGS (1)
  1. REVLIMID [Suspect]
     Active Substance: LENALIDOMIDE
     Indication: Rheumatoid arthritis
     Route: 048

REACTIONS (4)
  - Nausea [Unknown]
  - Diarrhoea [Unknown]
  - Weight decreased [Unknown]
  - Off label use [Unknown]
